FAERS Safety Report 10102363 (Version 2)
Quarter: 2014Q3

REPORT INFORMATION
  Report Type: Spontaneous
  Country: FR (occurrence: FR)
  Receive Date: 20140424
  Receipt Date: 20140919
  Transmission Date: 20150326
  Serious: Yes (Hospitalization)
  Sender: FDA-Public Use
  Company Number: PHHY2014FR047965

PATIENT
  Age: 56 Year
  Sex: Male

DRUGS (6)
  1. MALACEF [Suspect]
     Active Substance: ARTESUNATE
     Indication: SUPERINFECTION BACTERIAL
     Dosage: 220 MG, BID
     Route: 048
     Dates: start: 20140225, end: 20140227
  2. RIAMET [Suspect]
     Active Substance: ARTEMETHER\LUMEFANTRINE
     Dosage: 8 DF, (4 DF, 2 IN 1 DAY)
     Route: 048
     Dates: start: 20140228, end: 20140302
  3. COUMADINE [Concomitant]
     Active Substance: WARFARIN SODIUM
  4. PARACETAMOL [Concomitant]
     Active Substance: ACETAMINOPHEN
  5. ROCEPHINE [Suspect]
     Active Substance: CEFTRIAXONE SODIUM
     Indication: SUPERINFECTION BACTERIAL
     Dosage: 1 G, (1 G, 1 IN 1 DAY)
     Route: 042
     Dates: start: 20140225, end: 20140301
  6. INNOHEP [Suspect]
     Active Substance: TINZAPARIN SODIUM
     Dosage: 17000 IU, (17 000 IU, 1 IN 1 DAYS)
     Route: 058
     Dates: start: 20140227, end: 20140310

REACTIONS (1)
  - Haemolytic anaemia [Recovered/Resolved]

NARRATIVE: CASE EVENT DATE: 20140303
